FAERS Safety Report 6312900-6 (Version None)
Quarter: 2009Q3

REPORT INFORMATION
  Report Type: 
  Country: None (occurrence: None)
  Receive Date: 20090818
  Receipt Date: 20090811
  Transmission Date: 20100115
  Serious: Yes (Hospitalization, Other)
  Sender: FDA-Public Use
  Company Number: US-AMGEN-US359733

PATIENT
  Sex: Female

DRUGS (18)
  1. ARANESP [Suspect]
     Indication: ANAEMIA OF MALIGNANT DISEASE
     Dates: start: 20060101
  2. THALIDOMIDE [Suspect]
     Indication: MULTIPLE MYELOMA
     Route: 048
     Dates: start: 20060623, end: 20090401
  3. AVELOX [Concomitant]
  4. PRILOSEC [Concomitant]
  5. DIOVAN [Concomitant]
  6. MAGNESIUM [Concomitant]
  7. DEXAMETHASONE [Concomitant]
  8. ASPIRIN [Concomitant]
  9. NYSTATIN [Concomitant]
  10. DOCUSATE SODIUM [Concomitant]
  11. ZOMETA [Concomitant]
     Route: 042
  12. DOXYCYCLINE [Concomitant]
  13. SENNOSIDE A+B [Concomitant]
  14. RANITIDINE [Concomitant]
  15. ACYCLOVIR [Concomitant]
  16. VELCADE [Concomitant]
     Route: 042
  17. CYTOXAN [Concomitant]
     Route: 042
  18. KYTRIL [Concomitant]
     Route: 042

REACTIONS (5)
  - BRADYCARDIA [None]
  - CONSTIPATION [None]
  - PNEUMONIA [None]
  - RASH [None]
  - URTICARIA [None]
